FAERS Safety Report 17404907 (Version 14)
Quarter: 2022Q3

REPORT INFORMATION
  Report Type: Spontaneous
  Country: JP (occurrence: JP)
  Receive Date: 20200211
  Receipt Date: 20220729
  Transmission Date: 20221026
  Serious: Yes (Hospitalization, Other)
  Sender: FDA-Public Use
  Company Number: JP-BRISTOL-MYERS SQUIBB COMPANY-BMS-2020-010830

PATIENT
  Age: 66 Year
  Sex: Male

DRUGS (6)
  1. YERVOY [Suspect]
     Active Substance: IPILIMUMAB
     Indication: Metastatic renal cell carcinoma
     Dosage: 59 MILLIGRAM, ONE TIME DOSE
     Route: 041
     Dates: start: 20190208, end: 20190208
  2. YERVOY [Suspect]
     Active Substance: IPILIMUMAB
     Dosage: 59 MILLIGRAM, ONE TIME DOSE
     Route: 041
     Dates: start: 20190311, end: 20190311
  3. YERVOY [Suspect]
     Active Substance: IPILIMUMAB
     Dosage: 59 MILLIGRAM, ONE TIME DOSE
     Route: 041
     Dates: start: 20190322, end: 20190322
  4. OPDIVO [Suspect]
     Active Substance: NIVOLUMAB
     Indication: Metastatic renal cell carcinoma
     Dosage: 240 MILLIGRAM
     Route: 041
     Dates: start: 20190208, end: 20190208
  5. OPDIVO [Suspect]
     Active Substance: NIVOLUMAB
     Dosage: 240 MILLIGRAM
     Route: 041
     Dates: start: 20190301, end: 20190301
  6. OPDIVO [Suspect]
     Active Substance: NIVOLUMAB
     Dosage: 240 MILLIGRAM
     Route: 041
     Dates: start: 20190322, end: 20190322

REACTIONS (16)
  - Metastases to central nervous system [Unknown]
  - Renal impairment [Unknown]
  - Brain oedema [Unknown]
  - General physical health deterioration [Unknown]
  - Secondary adrenocortical insufficiency [Unknown]
  - Vomiting [Unknown]
  - Diarrhoea [Unknown]
  - Steroid diabetes [Recovering/Resolving]
  - Hypopituitarism [Unknown]
  - Monoplegia [Unknown]
  - Condition aggravated [Unknown]
  - Hyperthyroidism [Recovered/Resolved]
  - Hypothalamo-pituitary disorder [Unknown]
  - Motor dysfunction [Unknown]
  - Hepatic function abnormal [Recovering/Resolving]
  - Disorientation [Recovering/Resolving]

NARRATIVE: CASE EVENT DATE: 20190301
